FAERS Safety Report 10061325 (Version 2)
Quarter: 2014Q2

REPORT INFORMATION
  Report Type: Spontaneous
  Country: US (occurrence: US)
  Receive Date: 20140407
  Receipt Date: 20140425
  Transmission Date: 20141212
  Serious: Yes (Other)
  Sender: FDA-Public Use
  Company Number: US-009507513-1404USA002157

PATIENT
  Sex: Female
  Weight: 63.49 kg

DRUGS (1)
  1. NEXPLANON [Suspect]
     Indication: CONTRACEPTION
     Dosage: UNK
     Route: 059
     Dates: start: 20140328, end: 20140403

REACTIONS (2)
  - Pruritus [Recovered/Resolved]
  - Rash generalised [Recovered/Resolved]
